FAERS Safety Report 7824439-7 (Version None)
Quarter: 2011Q4

REPORT INFORMATION
  Report Type: 
  Country: None (occurrence: None)
  Receive Date: 20111019
  Receipt Date: 20111012
  Transmission Date: 20120403
  Serious: Yes (Other)
  Sender: FDA-Public Use
  Company Number: US-ELI_LILLY_AND_COMPANY-US201107008154

PATIENT
  Sex: Male
  Weight: 89.796 kg

DRUGS (4)
  1. EFFIENT [Suspect]
     Indication: STENT PLACEMENT
     Dosage: 10 MG, QD
     Dates: start: 20100801, end: 20110101
  2. ASPIRIN [Concomitant]
     Dosage: 325 MG, EACH MORNING
     Route: 065
  3. COREG [Concomitant]
     Dosage: 6.25 MG, ONE HALF PILLS BID MORNING AND EVENING
  4. LISINOPRIL [Concomitant]
     Dosage: 30 MG, QD AT NIGHT
     Route: 065

REACTIONS (7)
  - ASTHENIA [None]
  - HYPERTENSION [None]
  - ANGINA PECTORIS [None]
  - ANXIETY [None]
  - NON-CARDIAC CHEST PAIN [None]
  - FATIGUE [None]
  - PAIN IN EXTREMITY [None]
